FAERS Safety Report 8286761-2 (Version None)
Quarter: 2012Q2

REPORT INFORMATION
  Report Type: 
  Country: None (occurrence: None)
  Receive Date: 20120416
  Receipt Date: 20120411
  Transmission Date: 20120825
  Serious: Yes (Hospitalization)
  Sender: FDA-Public Use
  Company Number: BR-SANOFI-AVENTIS-2012SA025480

PATIENT
  Age: 70 Year
  Sex: Female
  Weight: 105 kg

DRUGS (8)
  1. ARAVA [Suspect]
     Indication: RHEUMATOID ARTHRITIS
     Route: 048
     Dates: start: 20120101, end: 20120318
  2. ARAVA [Suspect]
     Route: 048
     Dates: start: 20120101, end: 20120318
  3. ACETAMINOPHEN [Concomitant]
     Indication: PAIN
     Route: 048
     Dates: start: 20111201, end: 20120319
  4. FAMOTIDINE [Concomitant]
     Indication: PROPHYLAXIS
     Route: 048
     Dates: start: 20111201, end: 20120319
  5. ACETYLSALICYLIC ACID/ISOSORBIDE MONONITRATE [Concomitant]
     Dosage: STRENGTH: 100/40 MG
     Route: 048
     Dates: start: 20040101
  6. DIOVAN HCT [Concomitant]
     Dosage: STRENGTH: 160/25 MG
     Route: 048
     Dates: start: 20040101
  7. ATENOLOL [Concomitant]
     Dosage: STRENGTH: 50 MG
     Route: 048
     Dates: start: 20040101
  8. ALLOPURINOL [Concomitant]
     Route: 048
     Dates: start: 20111201, end: 20120319

REACTIONS (1)
  - ARRHYTHMIA [None]
